FAERS Safety Report 9252230 (Version 1)
Quarter: 2013Q2

REPORT INFORMATION
  Report Type: Spontaneous
  Country: DE (occurrence: DE)
  Receive Date: 20130424
  Receipt Date: 20130424
  Transmission Date: 20140414
  Serious: Yes (Hospitalization)
  Sender: FDA-Public Use
  Company Number: DE-PFIZER INC-2013126983

PATIENT
  Age: 75 Year
  Sex: Female
  Weight: 74 kg

DRUGS (9)
  1. PANTOZOL [Suspect]
     Indication: GASTRIC ULCER
     Dosage: 40 MG, 2X/DAY
     Dates: start: 20130201
  2. NORVASC [Concomitant]
     Dosage: 8 MG, UNK
  3. ENALAPRIL [Concomitant]
     Dosage: 20 MG, UNK
  4. BISOPROLOL [Concomitant]
     Dosage: 10 MG, UNK
  5. CLOPIDOGREL [Concomitant]
     Dosage: 25 MG, UNK
  6. SIMVASTATIN [Concomitant]
     Dosage: 40 MG, UNK
  7. TORASEMID [Concomitant]
     Dosage: 10 MG, UNK
  8. MADOPAR [Concomitant]
     Dosage: 250 MG, UNK
  9. AMINOXIN [Concomitant]
     Dosage: UNK

REACTIONS (1)
  - Red blood cell sedimentation rate increased [Not Recovered/Not Resolved]
